FAERS Safety Report 21655559 (Version 1)
Quarter: 2022Q4

REPORT INFORMATION
  Report Type: Spontaneous
  Country: IT (occurrence: IT)
  Receive Date: 20221129
  Receipt Date: 20221129
  Transmission Date: 20230112
  Serious: No
  Sender: FDA-Public Use
  Company Number: IT-PADAGIS-2022PAD00995

PATIENT

DRUGS (1)
  1. PERMETHRIN [Suspect]
     Active Substance: PERMETHRIN
     Indication: Acarodermatitis
     Dosage: REPEATED COURSES (10 APPLICATIONS RESPECTIVELY)
     Route: 061

REACTIONS (1)
  - Drug resistance [Unknown]
